FAERS Safety Report 19489216 (Version 3)
Quarter: 2021Q3

REPORT INFORMATION
  Report Type: Other
  Country: GB (occurrence: GB)
  Receive Date: 20210703
  Receipt Date: 20210722
  Transmission Date: 20211014
  Serious: Yes (Hospitalization, Disabling, Other)
  Sender: FDA-Public Use
  Company Number: GB-MACLEODS PHARMA UK LTD-MAC2021031685

PATIENT

DRUGS (19)
  1. METRONIDAZOLE TABLETS [Interacting]
     Active Substance: METRONIDAZOLE
     Indication: CHALAZION
     Dosage: 400 MILLIGRAM, TID, 1200 MG
     Route: 048
  2. WARFARIN [Interacting]
     Active Substance: WARFARIN
     Indication: FACTOR V DEFICIENCY
     Dosage: UNK, PREFERRED PRODUCT DESCRIPTION: WARFARIN THERAPY END FLAG: DRUG NO LONGER ADMINISTERED
     Route: 065
  3. ASPIRIN. [Interacting]
     Active Substance: ASPIRIN
     Dosage: 300 MILLIGRAM, QD, PATIENT RECEIVED 300MG ON ADMITTANCE AND STARTED ON A 75MG/DAY REGIME
     Route: 065
  4. ERYTHROMYCIN. [Interacting]
     Active Substance: ERYTHROMYCIN
     Indication: CELLULITIS
     Dosage: 1000 MILLIGRAM, QD, 250 MG, 4X PER DAY
     Route: 048
  5. METRONIDAZOLE TABLETS [Interacting]
     Active Substance: METRONIDAZOLE
     Indication: ANTIBIOTIC THERAPY
  6. TEICOPLANIN [Interacting]
     Active Substance: TEICOPLANIN
     Indication: CELLULITIS
     Dosage: , 400 MG, 1X PER DAY400 MILLIGRAM, QD
     Route: 030
  7. VITAMIN K [Concomitant]
     Active Substance: PHYTONADIONE
     Indication: PRODUCT USED FOR UNKNOWN INDICATION
     Dosage: UNK
     Route: 065
  8. CIPROFLOXACIN. [Interacting]
     Active Substance: CIPROFLOXACIN
     Indication: ANTIBIOTIC THERAPY
  9. MEROPENEM. [Interacting]
     Active Substance: MEROPENEM
     Indication: CELLULITIS
     Dosage: 2 GRAM, BID, 4 GRAM QD, POWDER FOR SOLUTION FOR INJECTION
     Route: 042
  10. ASPIRIN. [Interacting]
     Active Substance: ASPIRIN
     Indication: ANTIPLATELET THERAPY
     Dosage: 75 MILLIGRAM, QD, ACETYLSALICYLIC ACID
     Route: 065
  11. MEROPENEM. [Interacting]
     Active Substance: MEROPENEM
     Indication: ANTIBIOTIC THERAPY
     Dosage: 2 GRAM, BID, 2X PER DAY
     Route: 030
  12. CLOPIDOGREL [Suspect]
     Active Substance: CLOPIDOGREL BISULFATE
     Indication: CHEST PAIN
     Dosage: 300 MILLIGRAM, QD
     Route: 048
  13. TEICOPLANIN [Interacting]
     Active Substance: TEICOPLANIN
     Indication: ANTIBIOTIC THERAPY
     Dosage: UNK
     Route: 065
  14. CIPROFLOXACIN. [Interacting]
     Active Substance: CIPROFLOXACIN
     Indication: CELLULITIS
     Dosage: UNK
     Route: 065
  15. CIPROFLOXACIN. [Interacting]
     Active Substance: CIPROFLOXACIN
     Indication: CHALAZION
     Dosage: 750 MILLIGRAM, BID, 1500 MG QD
     Route: 048
  16. WARFARIN [Interacting]
     Active Substance: WARFARIN
     Indication: PULMONARY EMBOLISM
     Dosage: UNK, PATIENT WAS ON WARFARIN FOR FACTOR V DEFICIENCY AT UNKNOWN DOSE WITH A MAINTANCE INR OF 3.
     Route: 065
  17. CLOPIDOGREL [Interacting]
     Active Substance: CLOPIDOGREL BISULFATE
     Indication: ANTIPLATELET THERAPY
     Dosage: 75 MILLIGRAM, QD, CLOPIDOGREL HYDROGENSULPHATE
     Route: 048
  18. ERYTHROMYCIN. [Interacting]
     Active Substance: ERYTHROMYCIN
     Indication: ANTIBIOTIC THERAPY
     Dosage: 250 MILLIGRAM, QID, 1000 MG
     Route: 048
  19. METRONIDAZOLE TABLETS [Interacting]
     Active Substance: METRONIDAZOLE
     Indication: CELLULITIS
     Dosage: UNK, TABLET
     Route: 065

REACTIONS (12)
  - Intraocular pressure increased [Not Recovered/Not Resolved]
  - Potentiating drug interaction [Recovered/Resolved]
  - Headache [Unknown]
  - Coagulation time prolonged [Recovered/Resolved]
  - Hyphaema [Recovered/Resolved]
  - Visual acuity reduced [Unknown]
  - Eye pain [Recovered/Resolved]
  - Nausea [Unknown]
  - Drug interaction [Recovered/Resolved]
  - International normalised ratio increased [Recovered/Resolved]
  - Pyrexia [Unknown]
  - Decreased appetite [Unknown]
